FAERS Safety Report 19520544 (Version 1)
Quarter: 2021Q3

REPORT INFORMATION
  Report Type: Spontaneous
  Country: US (occurrence: US)
  Receive Date: 20210712
  Receipt Date: 20210712
  Transmission Date: 20211014
  Serious: No
  Sender: FDA-Public Use
  Company Number: US-FOUNDATIONCONSUMERHC-2021-US-012900

PATIENT
  Age: 28 Year
  Sex: Female
  Weight: 61.69 kg

DRUGS (2)
  1. UNSPECIFIED DETOX TEA [Suspect]
     Active Substance: UNSPECIFIED INGREDIENT
     Dates: start: 202106
  2. PLAN B ONE?STEP [Suspect]
     Active Substance: LEVONORGESTREL
     Indication: POST COITAL CONTRACEPTION
     Dosage: 1.5 MG X 3 DOSES
     Route: 048
     Dates: start: 20210426, end: 20210604

REACTIONS (3)
  - Menstruation delayed [Not Recovered/Not Resolved]
  - Dysmenorrhoea [Not Recovered/Not Resolved]
  - Vaginal haemorrhage [Recovered/Resolved]

NARRATIVE: CASE EVENT DATE: 20210515
